FAERS Safety Report 7072736-8 (Version None)
Quarter: 2010Q4

REPORT INFORMATION
  Report Type: 
  Country: None (occurrence: None)
  Receive Date: 20101029
  Receipt Date: 20100401
  Transmission Date: 20110411
  Serious: No
  Sender: FDA-Public Use
  Company Number: A0848673A

PATIENT
  Age: 52 Year
  Sex: Female

DRUGS (12)
  1. ADVAIR DISKUS 100/50 [Suspect]
     Indication: ASTHMA
     Dosage: 1PUFF TWICE PER DAY
     Route: 055
  2. KLONOPIN [Concomitant]
  3. GEODON [Concomitant]
  4. UNKNOWN MEDICATION [Concomitant]
  5. TRICOR [Concomitant]
  6. METFORMIN [Concomitant]
  7. LEVOXYL [Concomitant]
  8. MOTRIN [Concomitant]
  9. HYDROCHLOROTHIAZIDE [Concomitant]
  10. INSULIN [Concomitant]
  11. BENADRYL [Concomitant]
  12. DEXTROAMPHETAMINE [Concomitant]

REACTIONS (3)
  - DYSPNOEA [None]
  - OVERDOSE [None]
  - PRODUCT QUALITY ISSUE [None]
